FAERS Safety Report 15215695 (Version 3)
Quarter: 2019Q2

REPORT INFORMATION
  Report Type: Spontaneous
  Country: GB (occurrence: GB)
  Receive Date: 20180730
  Receipt Date: 20190424
  Transmission Date: 20190711
  Serious: Yes (Other)
  Sender: FDA-Public Use
  Company Number: GB-NOVOPROD-612547

PATIENT
  Age: 72 Year
  Sex: Male
  Weight: 63.95 kg

DRUGS (2)
  1. NOVORAPID [Suspect]
     Active Substance: INSULIN ASPART
     Indication: TYPE 1 DIABETES MELLITUS
     Dosage: 30 IU, QD (TAKEN 4 TIMES PER DAY)
     Route: 065
     Dates: start: 20041004
  2. THYROXINE [Concomitant]
     Active Substance: LEVOTHYROXINE
     Indication: THYROID DISORDER
     Dosage: UNK

REACTIONS (1)
  - Oesophageal achalasia [Unknown]

NARRATIVE: CASE EVENT DATE: 2006
